FAERS Safety Report 10692798 (Version 1)
Quarter: 2014Q4

REPORT INFORMATION
  Report Type: Spontaneous
  Country: US (occurrence: None)
  Receive Date: 20141223
  Receipt Date: 20141223
  Transmission Date: 20150529
  Serious: Yes (Other)
  Sender: FDA-Public Use
  Company Number: 424551

PATIENT
  Sex: Female

DRUGS (3)
  1. NOVOLIN [Suspect]
     Active Substance: INSULIN HUMAN
     Indication: TYPE 2 DIABETES MELLITUS
     Route: 058
     Dates: start: 201409, end: 20140929
  2. HUMALOG [Concomitant]
     Active Substance: INSULIN LISPRO
  3. LANTUS [Concomitant]
     Active Substance: INSULIN GLARGINE

REACTIONS (5)
  - Epistaxis [None]
  - Wrong drug administered [None]
  - Blood glucose decreased [None]
  - Hypoglycaemic unconsciousness [None]
  - Drug dispensed to wrong patient [None]

NARRATIVE: CASE EVENT DATE: 201409
